FAERS Safety Report 9699176 (Version 1)
Quarter: 2013Q4

REPORT INFORMATION
  Report Type: Spontaneous
  Country: US (occurrence: US)
  Receive Date: 20131120
  Receipt Date: 20131120
  Transmission Date: 20140711
  Serious: No
  Sender: FDA-Public Use
  Company Number: US-GILEAD-2008-0015065

PATIENT
  Age: 43 Year
  Sex: Female
  Weight: 68.95 kg

DRUGS (9)
  1. LETAIRIS [Suspect]
     Indication: PULMONARY ARTERIAL HYPERTENSION
     Route: 048
     Dates: start: 20071029
  2. REVATIO [Concomitant]
     Indication: PULMONARY ARTERIAL HYPERTENSION
     Route: 048
  3. FUROSEMIDE [Concomitant]
     Indication: PULMONARY ARTERIAL HYPERTENSION
     Route: 048
  4. WARFARIN SODIUM [Concomitant]
     Indication: ANTICOAGULATION DRUG LEVEL THERAPEUTIC
     Route: 048
  5. LISINOPRIL [Concomitant]
     Indication: ESSENTIAL HYPERTENSION
     Route: 048
  6. DIGITEK [Concomitant]
     Indication: ESSENTIAL HYPERTENSION
     Route: 048
  7. TRAZODONE [Concomitant]
     Indication: DEPRESSION
     Route: 048
  8. VYTORIN [Concomitant]
     Indication: HYPERCHOLESTEROLAEMIA
     Route: 048
  9. K-DUR CR [Concomitant]
     Indication: NUTRITIONAL SUPPLEMENTATION
     Route: 023

REACTIONS (1)
  - Unevaluable event [Not Recovered/Not Resolved]
